FAERS Safety Report 19460900 (Version 1)
Quarter: 2021Q2

REPORT INFORMATION
  Report Type: Spontaneous
  Country: US (occurrence: US)
  Receive Date: 20210625
  Receipt Date: 20210625
  Transmission Date: 20210717
  Serious: No
  Sender: FDA-Public Use
  Company Number: US-JNJFOC-20210643659

PATIENT
  Age: 59 Year
  Sex: Female
  Weight: 73.55 kg

DRUGS (12)
  1. BENADRYL [Concomitant]
     Active Substance: DIPHENHYDRAMINE HYDROCHLORIDE
     Indication: INFUSION SITE PAIN
     Route: 048
     Dates: start: 202106
  2. CLARITINE [Concomitant]
     Active Substance: LORATADINE
     Indication: INFUSION SITE PAIN
     Route: 065
     Dates: start: 202106
  3. MOTRIN [Suspect]
     Active Substance: IBUPROFEN
     Indication: INFUSION SITE PAIN
     Route: 065
     Dates: start: 202106
  4. REMODULIN [Concomitant]
     Active Substance: TREPROSTINIL
     Indication: PULMONARY ARTERIAL HYPERTENSION
     Route: 058
     Dates: start: 20190514
  5. SILDENAFIL CITRATE. [Concomitant]
     Active Substance: SILDENAFIL CITRATE
     Indication: PRODUCT USED FOR UNKNOWN INDICATION
     Route: 065
  6. TRAMADOL. [Concomitant]
     Active Substance: TRAMADOL
     Indication: INFUSION SITE PAIN
     Route: 065
     Dates: start: 202106
  7. HYDROCODONE;PARACETAMOL [Concomitant]
     Active Substance: ACETAMINOPHEN\HYDROCODONE
     Indication: INFUSION SITE PAIN
     Route: 065
     Dates: start: 202106
  8. LIDOCAINE. [Concomitant]
     Active Substance: LIDOCAINE
     Indication: INFUSION SITE PAIN
     Route: 065
     Dates: start: 202106
  9. PLO GEL MEDIFLO [Suspect]
     Active Substance: LECITHIN\POLOXAMER 407
     Indication: INFUSION SITE PAIN
     Route: 065
     Dates: start: 202106
  10. BENADRYL [Concomitant]
     Active Substance: DIPHENHYDRAMINE HYDROCHLORIDE
     Route: 061
  11. BENADRYL [Concomitant]
     Active Substance: DIPHENHYDRAMINE HYDROCHLORIDE
     Indication: INFUSION SITE PAIN
     Route: 061
     Dates: start: 202106
  12. HYDROCORTISONE. [Concomitant]
     Active Substance: HYDROCORTISONE
     Indication: INFUSION SITE PAIN
     Route: 065
     Dates: start: 202106

REACTIONS (1)
  - Condition aggravated [Unknown]

NARRATIVE: CASE EVENT DATE: 202106
